FAERS Safety Report 4803222-0 (Version None)
Quarter: 2005Q3

REPORT INFORMATION
  Report Type: 
  Country: None (occurrence: None)
  Receive Date: 20050929
  Receipt Date: 20050623
  Transmission Date: 20060218
  Serious: Yes (Hospitalization)
  Sender: FDA-Public Use
  Company Number: 05P-163-0303875-00

PATIENT
  Age: 71 Year
  Sex: Female
  Weight: 65.7716 kg

DRUGS (8)
  1. HUMIRA [Suspect]
     Indication: RHEUMATOID ARTHRITIS
     Dosage: 40 MG, SUBCUTANEOUS
     Route: 058
     Dates: start: 20040101, end: 20050101
  2. GLIBENCLAMIDE [Concomitant]
  3. MEDFORMIN [Concomitant]
  4. FOLIC ACID [Concomitant]
  5. EZETIMIBE [Concomitant]
  6. LISINOPRIL [Concomitant]
  7. FELUDIPINE [Concomitant]
  8. CLOPIDOGREL BISULFATE [Concomitant]

REACTIONS (2)
  - DIABETIC FOOT [None]
  - MYOCARDIAL INFARCTION [None]
